FAERS Safety Report 9462555 (Version 3)
Quarter: 2013Q4

REPORT INFORMATION
  Report Type: Report from Study
  Country: US (occurrence: US)
  Receive Date: 20130816
  Receipt Date: 20131022
  Transmission Date: 20140711
  Serious: Yes (Hospitalization)
  Sender: FDA-Public Use
  Company Number: US-AMGEN-USACT2013055925

PATIENT
  Age: 15 Year
  Sex: Male
  Weight: 72.7 kg

DRUGS (3)
  1. ETANERCEPT [Suspect]
     Indication: PSORIASIS
     Dosage: 2.0 ML, QWK
     Route: 058
     Dates: start: 20121009
  2. SALEX [Concomitant]
     Dosage: 6 %, BID
     Route: 061
  3. TRIAMCINOLONE [Concomitant]
     Dosage: 0.1 %, BID
     Route: 061

REACTIONS (1)
  - Major depression [Recovering/Resolving]
